FAERS Safety Report 12445107 (Version 1)
Quarter: 2016Q2

REPORT INFORMATION
  Report Type: Spontaneous
  Country: CN (occurrence: CN)
  Receive Date: 20160607
  Receipt Date: 20160607
  Transmission Date: 20160815
  Serious: Yes (Other)
  Sender: FDA-Public Use
  Company Number: CN-ASTRAZENECA-2016SE60384

PATIENT
  Age: 33 Day
  Sex: Female
  Weight: 4 kg

DRUGS (6)
  1. BUDESONIDE. [Suspect]
     Active Substance: BUDESONIDE
     Indication: ANTITUSSIVE THERAPY
     Route: 055
     Dates: start: 20151014, end: 20151017
  2. IPRATROPIUM BROMIDE. [Concomitant]
     Active Substance: IPRATROPIUM BROMIDE
     Indication: ANTITUSSIVE THERAPY
     Route: 055
     Dates: start: 20151014, end: 20151017
  3. TERBUTALINE SULPHATE [Concomitant]
     Active Substance: TERBUTALINE SULFATE
     Indication: SPUTUM INCREASED
     Route: 055
     Dates: start: 20151014, end: 20151017
  4. TERBUTALINE SULPHATE [Concomitant]
     Active Substance: TERBUTALINE SULFATE
     Indication: ANTITUSSIVE THERAPY
     Route: 055
     Dates: start: 20151014, end: 20151017
  5. BUDESONIDE. [Suspect]
     Active Substance: BUDESONIDE
     Indication: SPUTUM INCREASED
     Route: 055
     Dates: start: 20151014, end: 20151017
  6. IPRATROPIUM BROMIDE. [Concomitant]
     Active Substance: IPRATROPIUM BROMIDE
     Indication: SPUTUM INCREASED
     Route: 055
     Dates: start: 20151014, end: 20151017

REACTIONS (1)
  - Haemoptysis [Recovered/Resolved]

NARRATIVE: CASE EVENT DATE: 20151017
